FAERS Safety Report 5921571-X (Version None)
Quarter: 2008Q4

REPORT INFORMATION
  Report Type: 
  Country: None (occurrence: None)
  Receive Date: 20081017
  Receipt Date: 20071116
  Transmission Date: 20090506
  Serious: No
  Sender: FDA-Public Use
  Company Number: US-KINGPHARMUSA00001-K200701475

PATIENT

DRUGS (6)
  1. SYNERCID [Suspect]
     Indication: STAPHYLOCOCCAL INFECTION
     Dosage: UNK, BID
     Route: 042
     Dates: start: 20071101
  2. TENORMIN [Concomitant]
     Indication: HYPERTENSION
  3. NORVASC [Concomitant]
     Indication: HYPERTENSION
  4. ASPIRIN [Concomitant]
  5. TRICOR [Concomitant]
     Indication: BLOOD CHOLESTEROL INCREASED
  6. TPN [Concomitant]
     Indication: NUTRITIONAL SUPPORT
     Dosage: UNK, QD AT NIGHT

REACTIONS (1)
  - CATHETER RELATED COMPLICATION [None]
